FAERS Safety Report 4691614-2 (Version None)
Quarter: 2005Q2

REPORT INFORMATION
  Report Type: 
  Country: None (occurrence: None)
  Receive Date: 20050608
  Receipt Date: 20050311
  Transmission Date: 20051028
  Serious: Yes (Other)
  Sender: FDA-Public Use
  Company Number: 335285

PATIENT
  Sex: Male
  Weight: 3.4 kg

DRUGS (2)
  1. ISOTRETINOIN [Suspect]
     Indication: ACNE
     Dosage: 45 MG DAILY ORAL
     Route: 048
     Dates: start: 20020708, end: 20030108
  2. ORAL CONTRACEPTIVE NOS [Concomitant]

REACTIONS (2)
  - NO ADVERSE EFFECT [None]
  - NORMAL NEWBORN [None]
